FAERS Safety Report 13450054 (Version 1)
Quarter: 2017Q2

REPORT INFORMATION
  Report Type: Spontaneous
  Country: US (occurrence: US)
  Receive Date: 20170417
  Receipt Date: 20170417
  Transmission Date: 20170830
  Serious: No
  Sender: FDA-Public Use
  Company Number: US-BION-20160572

PATIENT
  Age: 69 Year
  Sex: Female
  Weight: 104.33 kg

DRUGS (14)
  1. DULOXETINE. [Concomitant]
     Active Substance: DULOXETINE
  2. CLONAZEPAM. [Concomitant]
     Active Substance: CLONAZEPAM
  3. THYROID MEDICATION [Concomitant]
     Active Substance: UNSPECIFIED INGREDIENT
  4. SPASM MEDICATION [Concomitant]
  5. ALEVE [Suspect]
     Active Substance: NAPROXEN SODIUM
     Indication: ANALGESIC THERAPY
     Dosage: 3 DF UNK
     Route: 048
  6. BAYER ASPIRIN [Concomitant]
     Active Substance: ASPIRIN
  7. LYRICA [Concomitant]
     Active Substance: PREGABALIN
  8. VOLTAREN [Concomitant]
     Active Substance: DICLOFENAC SODIUM
  9. MUSINEX D [Concomitant]
  10. SOMA [Concomitant]
     Active Substance: CARISOPRODOL
  11. HYDROCODONE [Concomitant]
     Active Substance: HYDROCODONE
  12. LUNESTA [Concomitant]
     Active Substance: ESZOPICLONE
  13. LISINOPRIL. [Concomitant]
     Active Substance: LISINOPRIL
  14. RHINOCORT-D [Concomitant]

REACTIONS (1)
  - Incorrect drug administration duration [Unknown]
